FAERS Safety Report 5823871-0 (Version None)
Quarter: 2008Q3

REPORT INFORMATION
  Report Type: 
  Country: None (occurrence: None)
  Receive Date: 20080725
  Receipt Date: 20080711
  Transmission Date: 20090109
  Serious: Yes (Hospitalization)
  Sender: FDA-Public Use
  Company Number: JP-GENENTECH-263959

PATIENT
  Sex: Female

DRUGS (8)
  1. AVASTIN [Suspect]
     Indication: COLON CANCER
     Dosage: 5 MG/KG, Q2W
     Route: 041
     Dates: start: 20080618, end: 20080618
  2. KYTRIL [Suspect]
     Indication: NAUSEA
     Dosage: 3 MG, UNK
     Dates: start: 20080618, end: 20080618
  3. TOPOTECAN [Suspect]
     Indication: COLON CANCER
     Route: 041
  4. LEUCOVORIN CALCIUM [Suspect]
     Indication: COLON CANCER
     Dosage: 275 MG, UNK
     Route: 042
  5. DECADRON [Suspect]
     Indication: VOMITING
     Dosage: 8 MG, QD
     Dates: start: 20080618, end: 20080618
  6. FLUOROURACIL [Concomitant]
     Indication: COLON CANCER
     Route: 042
  7. IRINOTECAN HCL [Concomitant]
     Indication: COLON CANCER METASTATIC
  8. FOLINIC ACID [Concomitant]
     Indication: COLON CANCER METASTATIC

REACTIONS (1)
  - ANAPHYLACTOID REACTION [None]
